FAERS Safety Report 17547560 (Version 1)
Quarter: 2020Q1

REPORT INFORMATION
  Report Type: Spontaneous
  Country: US (occurrence: US)
  Receive Date: 20200316
  Receipt Date: 20200316
  Transmission Date: 20200409
  Serious: No
  Sender: FDA-Public Use
  Company Number: US-VERTEX PHARMACEUTICALS-2020-004882

PATIENT
  Age: 39 Year
  Sex: Male

DRUGS (16)
  1. TRIKAFTA [Suspect]
     Active Substance: ELEXACAFTOR\IVACAFTOR\TEZACAFTOR
     Indication: CYSTIC FIBROSIS
     Dosage: 2 TAB (ELEXACAFTOR 100MG/ TEZACFTOR 50MG/ IVACAFTOR 75MG) AM, 1 TAB (IVACAFTOR 150MG) EVERY OTHER AM
     Route: 048
     Dates: start: 20200225
  2. LANTUS [Concomitant]
     Active Substance: INSULIN GLARGINE
  3. MYCOPHENOLATE MOFETIL. [Concomitant]
     Active Substance: MYCOPHENOLATE MOFETIL
  4. AZITHROMYCIN ANHYDROUS. [Concomitant]
     Active Substance: AZITHROMYCIN ANHYDROUS
  5. REMERON [Concomitant]
     Active Substance: MIRTAZAPINE
  6. CALCIUM 500+D [Concomitant]
     Active Substance: CALCIUM\VITAMIN D
  7. VITAMIN D2 [Concomitant]
     Active Substance: ERGOCALCIFEROL
  8. HUMALOG [Concomitant]
     Active Substance: INSULIN LISPRO
     Dosage: 100/ML UNITS
  9. SINGULAIR [Concomitant]
     Active Substance: MONTELUKAST SODIUM
  10. TACROLIMUS. [Concomitant]
     Active Substance: TACROLIMUS
  11. PREDNISONE. [Concomitant]
     Active Substance: PREDNISONE
  12. DILTIAZEM. [Concomitant]
     Active Substance: DILTIAZEM
  13. ZENPEP [Concomitant]
     Active Substance: PANCRELIPASE AMYLASE\PANCRELIPASE LIPASE\PANCRELIPASE PROTEASE
     Dosage: 10-32-42K
  14. PRAVASTATIN SODIUM. [Concomitant]
     Active Substance: PRAVASTATIN SODIUM
  15. PEPTO-BISMOL [Concomitant]
     Active Substance: BISMUTH SUBSALICYLATE
  16. COLISTIMETHATE [COLISTIMETHATE SODIUM] [Concomitant]
     Active Substance: COLISTIMETHATE SODIUM
     Dosage: VIAL

REACTIONS (1)
  - Abdominal pain upper [Recovered/Resolved]

NARRATIVE: CASE EVENT DATE: 20200225
